FAERS Safety Report 12947497 (Version 1)
Quarter: 2016Q4

REPORT INFORMATION
  Report Type: Spontaneous
  Country: US (occurrence: US)
  Receive Date: 20161116
  Receipt Date: 20161116
  Transmission Date: 20170207
  Serious: No
  Sender: FDA-Public Use
  Company Number: US-PFIZER INC-2016526211

PATIENT
  Age: 41 Year
  Sex: Female
  Weight: 52.16 kg

DRUGS (4)
  1. EMBEDA [Suspect]
     Active Substance: MORPHINE SULFATE\NALTREXONE HYDROCHLORIDE
     Indication: PAIN
     Dosage: 50 MG/2 MG, 1X/DAY
     Route: 048
     Dates: start: 201601, end: 20161108
  2. LYRICA [Concomitant]
     Active Substance: PREGABALIN
     Dosage: 100 MG, 2X/DAY
  3. DEPAKOTE [Concomitant]
     Active Substance: DIVALPROEX SODIUM
     Dosage: 250 MG, 1X/DAY
  4. EFFEXOR [Concomitant]
     Active Substance: VENLAFAXINE HYDROCHLORIDE
     Dosage: 75 MG, 1X/DAY

REACTIONS (13)
  - Blood urine [Recovered/Resolved]
  - Nausea [Unknown]
  - Pain [Unknown]
  - Rash [Recovered/Resolved]
  - Headache [Unknown]
  - Renal pain [Recovering/Resolving]
  - Pruritus [Recovered/Resolved]
  - Dysuria [Recovering/Resolving]
  - Chromaturia [Recovered/Resolved]
  - Drug hypersensitivity [Unknown]
  - Swelling [Recovered/Resolved]
  - Bladder pain [Recovering/Resolving]
  - Condition aggravated [Unknown]

NARRATIVE: CASE EVENT DATE: 201609
